FAERS Safety Report 5010363-4 (Version None)
Quarter: 2006Q2

REPORT INFORMATION
  Report Type: 
  Country: None (occurrence: None)
  Receive Date: 20060523
  Receipt Date: 20060508
  Transmission Date: 20061013
  Serious: Yes (Other)
  Sender: FDA-Public Use
  Company Number: HQWYE582012JAN05

PATIENT
  Age: 59 Year
  Sex: Female

DRUGS (3)
  1. PREMARIN [Suspect]
  2. ESTRADIOL [Suspect]
  3. MEDROXYPROGESTERONE [Suspect]

REACTIONS (4)
  - BREAST CANCER IN SITU [None]
  - BREAST CANCER RECURRENT [None]
  - OESTROGEN RECEPTOR ASSAY POSITIVE [None]
  - SCAR [None]
